FAERS Safety Report 8972055 (Version 3)
Quarter: 2013Q1

REPORT INFORMATION
  Report Type: Spontaneous
  Country: AT (occurrence: AT)
  Receive Date: 20121219
  Receipt Date: 20130131
  Transmission Date: 20140127
  Serious: Yes (Other)
  Sender: FDA-Public Use
  Company Number: AT-CELGENEUS-009-21880-12120960

PATIENT
  Age: 44 Year
  Sex: Male
  Weight: 109 kg

DRUGS (6)
  1. REVLIMID [Suspect]
     Indication: PLASMA CELL MYELOMA
     Dosage: 10 MILLIGRAM
     Route: 048
     Dates: start: 20120821
  2. REVLIMID [Suspect]
     Dosage: 10 MILLIGRAM
     Route: 048
     Dates: start: 201204
  3. REVLIMID [Suspect]
     Route: 048
     Dates: start: 20121220
  4. DEXAMETHASONE [Suspect]
     Indication: PLASMA CELL MYELOMA
     Route: 048
     Dates: start: 20120821
  5. DEXAMETHASONE [Suspect]
     Route: 065
     Dates: start: 201112
  6. DEXAMETHASONE [Suspect]
     Route: 065
     Dates: start: 20121220

REACTIONS (1)
  - Cushing^s syndrome [Recovering/Resolving]
